FAERS Safety Report 19087998 (Version 2)
Quarter: 2021Q2

REPORT INFORMATION
  Report Type: Spontaneous
  Country: US (occurrence: US)
  Receive Date: 20210402
  Receipt Date: 20210408
  Transmission Date: 20210717
  Serious: No
  Sender: FDA-Public Use
  Company Number: US-SA-2021SA106623

PATIENT
  Age: 57 Year
  Sex: Male

DRUGS (1)
  1. DUPIXENT [Suspect]
     Active Substance: DUPILUMAB
     Indication: DERMATITIS ATOPIC
     Dosage: 300 MG, QOW
     Route: 058

REACTIONS (5)
  - Injection site pain [Recovered/Resolved]
  - Dysgeusia [Unknown]
  - Wrong technique in device usage process [Recovered/Resolved]
  - Incorrect dose administered [Recovered/Resolved]
  - Injection site discomfort [Unknown]
